FAERS Safety Report 12883728 (Version 3)
Quarter: 2016Q4

REPORT INFORMATION
  Report Type: Report from Study
  Country: US (occurrence: US)
  Receive Date: 20161026
  Receipt Date: 20161117
  Transmission Date: 20170207
  Serious: Yes (Hospitalization, Other)
  Sender: FDA-Public Use
  Company Number: US-AMGEN-USASL2016146051

PATIENT
  Age: 75 Year
  Sex: Male
  Weight: 62.13 kg

DRUGS (1)
  1. REPATHA [Suspect]
     Active Substance: EVOLOCUMAB
     Indication: HYPERLIPIDAEMIA
     Dosage: 140 MG, Q2WK
     Route: 065
     Dates: start: 20151123

REACTIONS (12)
  - Balance disorder [Unknown]
  - Diabetic ulcer [Unknown]
  - Cardiac operation [Unknown]
  - Staphylococcal infection [Unknown]
  - Suicidal ideation [Unknown]
  - Weight decreased [Unknown]
  - Localised infection [Unknown]
  - Fall [Unknown]
  - Vascular occlusion [Unknown]
  - Depression [Unknown]
  - Diarrhoea [Unknown]
  - Toe amputation [Unknown]

NARRATIVE: CASE EVENT DATE: 201511
